FAERS Safety Report 9254622 (Version 3)
Quarter: 2013Q2

REPORT INFORMATION
  Report Type: Spontaneous
  Country: JP (occurrence: JP)
  Receive Date: 20130425
  Receipt Date: 20130620
  Transmission Date: 20140414
  Serious: Yes (Life-Threatening, Other)
  Sender: FDA-Public Use
  Company Number: JP-009507513-1304JPN013545

PATIENT
  Age: 71 Year
  Sex: Female
  Weight: 50 kg

DRUGS (5)
  1. PEGINTRON [Suspect]
     Indication: CHRONIC HEPATITIS C
     Dosage: 1.6 MICROGRAM PER KILOGRAM, QW
     Route: 058
     Dates: start: 20130319, end: 20130325
  2. REBETOL [Suspect]
     Indication: CHRONIC HEPATITIS C
     Dosage: 400 MG, QD
     Route: 048
     Dates: start: 20130319, end: 20130325
  3. TELAVIC [Suspect]
     Indication: CHRONIC HEPATITIS C
     Dosage: 1500MG, QD
     Route: 048
     Dates: start: 20130319
  4. TELAVIC [Suspect]
     Dosage: UNK
     Route: 048
     Dates: start: 20130322, end: 20130325
  5. URSO [Concomitant]
     Indication: CHRONIC HEPATITIS C
     Dosage: 400 MG, QD
     Route: 048

REACTIONS (3)
  - Aphagia [Recovering/Resolving]
  - Renal impairment [Recovering/Resolving]
  - Nausea [Recovering/Resolving]
